FAERS Safety Report 6229295-9 (Version None)
Quarter: 2009Q2

REPORT INFORMATION
  Report Type: 
  Country: None (occurrence: None)
  Receive Date: 20090615
  Receipt Date: 20070816
  Transmission Date: 20091009
  Serious: Yes (Hospitalization, Other)
  Sender: FDA-Public Use
  Company Number: US-ASTRAZENECA-2007UW01966

PATIENT
  Age: 8481 Day
  Sex: Female
  Weight: 88.9 kg

DRUGS (96)
  1. SEROQUEL [Suspect]
     Indication: BIPOLAR DISORDER
     Dosage: 25 MG TO 300 MG
     Route: 048
     Dates: start: 20030325, end: 20060525
  2. SEROQUEL [Suspect]
     Indication: DEPRESSION
     Dosage: 25 MG TO 300 MG
     Route: 048
     Dates: start: 20030325, end: 20060525
  3. SEROQUEL [Suspect]
     Indication: SLEEP DISORDER
     Dosage: 25 MG TO 300 MG
     Route: 048
     Dates: start: 20030325, end: 20060525
  4. SEROQUEL [Suspect]
     Indication: ANXIETY
     Dosage: 25 MG TO 300 MG
     Route: 048
     Dates: start: 20030325, end: 20060525
  5. SEROQUEL [Suspect]
     Indication: HALLUCINATION
     Dosage: 25 MG TO 300 MG
     Route: 048
     Dates: start: 20030325, end: 20060525
  6. SEROQUEL [Suspect]
     Indication: AFFECTIVE DISORDER
     Dosage: 25 MG TO 300 MG
     Route: 048
     Dates: start: 20030325, end: 20060525
  7. SEROQUEL [Suspect]
     Dosage: 300-650 MG
     Route: 048
     Dates: start: 20030325
  8. SEROQUEL [Suspect]
     Dosage: 300-650 MG
     Route: 048
     Dates: start: 20030325
  9. SEROQUEL [Suspect]
     Dosage: 300-650 MG
     Route: 048
     Dates: start: 20030325
  10. SEROQUEL [Suspect]
     Dosage: 300-650 MG
     Route: 048
     Dates: start: 20030325
  11. SEROQUEL [Suspect]
     Dosage: 300-650 MG
     Route: 048
     Dates: start: 20030325
  12. SEROQUEL [Suspect]
     Dosage: 300-650 MG
     Route: 048
     Dates: start: 20030325
  13. SEROQUEL [Suspect]
     Dosage: 25-150 MG
     Route: 048
     Dates: start: 20040823
  14. SEROQUEL [Suspect]
     Dosage: 25-150 MG
     Route: 048
     Dates: start: 20040823
  15. SEROQUEL [Suspect]
     Dosage: 25-150 MG
     Route: 048
     Dates: start: 20040823
  16. SEROQUEL [Suspect]
     Dosage: 25-150 MG
     Route: 048
     Dates: start: 20040823
  17. SEROQUEL [Suspect]
     Dosage: 25-150 MG
     Route: 048
     Dates: start: 20040823
  18. SEROQUEL [Suspect]
     Dosage: 25-150 MG
     Route: 048
     Dates: start: 20040823
  19. SEROQUEL [Suspect]
     Dosage: 500-750 MG
     Route: 048
     Dates: start: 20051220
  20. SEROQUEL [Suspect]
     Dosage: 500-750 MG
     Route: 048
     Dates: start: 20051220
  21. SEROQUEL [Suspect]
     Dosage: 500-750 MG
     Route: 048
     Dates: start: 20051220
  22. SEROQUEL [Suspect]
     Dosage: 500-750 MG
     Route: 048
     Dates: start: 20051220
  23. SEROQUEL [Suspect]
     Dosage: 500-750 MG
     Route: 048
     Dates: start: 20051220
  24. SEROQUEL [Suspect]
     Dosage: 500-750 MG
     Route: 048
     Dates: start: 20051220
  25. RISPERDAL [Concomitant]
     Dosage: 1 MG
     Dates: start: 20031216, end: 20040226
  26. RISPERDAL [Concomitant]
     Dosage: 2 MG
     Dates: start: 20041005
  27. RISPERDAL [Concomitant]
     Dosage: 3 MG
     Dates: start: 20041101, end: 20050531
  28. LUNESTA [Concomitant]
  29. PROCHLORPERAZINE [Concomitant]
  30. ZITHROMAX [Concomitant]
  31. FLUCONAZOLE [Concomitant]
  32. CIPROFLOXACIN [Concomitant]
  33. ALPRAZOLAM [Concomitant]
  34. ACETAMINOPHEN/COD [Concomitant]
  35. HYDROCODONE BITARTRATE + ACETAMINOPHEN [Concomitant]
  36. MIRTAZAPINE [Concomitant]
  37. PROPOXYPHENE NAPSYLATE AND ACETAMINOPHEN [Concomitant]
  38. INDOMETHACIN [Concomitant]
  39. OXYCODONE AND ACETAMINOPHEN [Concomitant]
  40. CLINDAMYCIN [Concomitant]
  41. BUTALBITAL ACETAMINOPHEN AND CAFFEINE [Concomitant]
  42. HYDROXYZINE [Concomitant]
  43. SINGULAIR [Concomitant]
  44. DIPHENOXYLATE HCL + ATROPINE SULFATE [Concomitant]
  45. FLUOXETINE HCL [Concomitant]
  46. ERY-TAB [Concomitant]
  47. CLOTRIMAZOLE [Concomitant]
  48. AMITRIPTYLINE HCL [Concomitant]
  49. PROMETHEGAN [Concomitant]
  50. NAPROXEN [Concomitant]
  51. LINDANE [Concomitant]
  52. BIAXIN [Concomitant]
  53. GUAIFENESIN DM [Concomitant]
  54. CEPHALEXIN [Concomitant]
  55. METRONIDAZOLE [Concomitant]
  56. NORETHINDRONE AND ETHINYL ESTRADIOL [Concomitant]
  57. TRAMADOL HCL [Concomitant]
  58. COTRIM [Concomitant]
  59. DURADRIN [Concomitant]
  60. TOPAMAX [Concomitant]
  61. RANITIDINE [Concomitant]
  62. AMIDRINE [Concomitant]
  63. PREDNISONE [Concomitant]
  64. DOXYCYCLINE [Concomitant]
  65. ANTIPYRINE/BENZOCAINE [Concomitant]
  66. ANTIBIOTIC EAR SUSPENSION [Concomitant]
  67. OMNICEF [Concomitant]
  68. TIZANIDINE [Concomitant]
  69. FLOVENT HFA [Concomitant]
  70. CARBOFED DM [Concomitant]
  71. ROZEREM [Concomitant]
  72. SULFAMETHOXAZOLE/T [Concomitant]
  73. DIPHENHYDRAMINE HCL [Concomitant]
  74. FAMOTIDINE [Concomitant]
  75. BENZTROPINE MESYLATE [Concomitant]
  76. NICODERM [Concomitant]
  77. REMERON [Concomitant]
     Dosage: 15-60 MG
     Route: 048
     Dates: start: 20040116
  78. ABILIFY [Concomitant]
     Route: 048
     Dates: start: 20040223
  79. ABILIFY [Concomitant]
     Dates: start: 20040625, end: 20040917
  80. VISTARIL [Concomitant]
     Dosage: 75-400 MG
     Route: 048
     Dates: start: 20040119
  81. COGENTIN [Concomitant]
     Route: 048
     Dates: start: 20031208
  82. DEPAKOTE [Concomitant]
     Dosage: 100 MG-1000 MG
     Route: 048
     Dates: start: 20030325
  83. LEXAPRO [Concomitant]
     Route: 048
     Dates: start: 20031013
  84. ZYPREXA [Concomitant]
     Route: 048
     Dates: start: 20031013
  85. PROZAC [Concomitant]
     Route: 048
     Dates: start: 20031208
  86. XANAX [Concomitant]
     Route: 048
     Dates: start: 20041220
  87. TRAZODONE HCL [Concomitant]
     Route: 048
     Dates: start: 20041114
  88. COMBIVENT [Concomitant]
     Dosage: 2 PUFFS DAILY
     Route: 045
     Dates: start: 20031211
  89. IBUPROFEN [Concomitant]
     Route: 048
     Dates: start: 20031123
  90. ZOLOFT [Concomitant]
     Route: 048
     Dates: start: 20031123
  91. AEROBID [Concomitant]
     Dosage: 2 PUFFS DAILY
     Route: 045
     Dates: start: 20041216
  92. METFORMIN HYDROCHLORIDE [Concomitant]
     Route: 048
     Dates: start: 20060613
  93. GEODON [Concomitant]
     Route: 048
     Dates: start: 20050205
  94. GEODON [Concomitant]
     Dosage: 60 MG
     Dates: start: 20050701
  95. CYMBALTA [Concomitant]
     Route: 048
     Dates: start: 20050114
  96. AMBIEN [Concomitant]
     Route: 048
     Dates: start: 20050114

REACTIONS (5)
  - MIGRAINE [None]
  - OVERDOSE [None]
  - PANCREATITIS [None]
  - PANCREATITIS ACUTE [None]
  - TYPE 2 DIABETES MELLITUS [None]
